FAERS Safety Report 4950062-8 (Version None)
Quarter: 2006Q1

REPORT INFORMATION
  Report Type: 
  Country: None (occurrence: None)
  Receive Date: 20060320
  Receipt Date: 20060320
  Transmission Date: 20060701
  Serious: Yes (Hospitalization)
  Sender: FDA-Public Use
  Company Number: None

PATIENT
  Age: 56 Year
  Sex: Female
  Weight: 118 kg

DRUGS (2)
  1. MAXIPIME [Suspect]
     Indication: DIABETIC FOOT
     Dosage: 2 GM IV Q8H
     Route: 042
     Dates: start: 20060222, end: 20060227
  2. PRIMAXIN [Suspect]
     Indication: SEPSIS
     Dosage: 500MG IV Q8H
     Route: 042
     Dates: start: 20060227, end: 20060228

REACTIONS (5)
  - AGGRESSION [None]
  - ANAEMIA [None]
  - CONFUSIONAL STATE [None]
  - DELIRIUM [None]
  - DISORIENTATION [None]
